FAERS Safety Report 17459727 (Version 2)
Quarter: 2020Q1

REPORT INFORMATION
  Report Type: Spontaneous
  Country: US (occurrence: US)
  Receive Date: 20200226
  Receipt Date: 20200302
  Transmission Date: 20200409
  Serious: Yes (Hospitalization, Other)
  Sender: FDA-Public Use
  Company Number: US-PFIZER INC-2020071282

PATIENT
  Age: 18 Year
  Sex: Female

DRUGS (2)
  1. DILANTIN [Suspect]
     Active Substance: PHENYTOIN
     Indication: SEIZURE
     Dosage: 100 MG, 3X/DAY
     Route: 048
     Dates: start: 197406
  2. PHENOBARBITAL [PHENOBARBITAL SODIUM] [Suspect]
     Active Substance: PHENOBARBITAL SODIUM
     Dosage: 15 MG, 3X/DAY
     Route: 048

REACTIONS (8)
  - Thrombocytopenia [Recovered/Resolved]
  - Vasculitis [Recovered/Resolved]
  - Haemolytic anaemia [Recovered/Resolved]
  - Purpura fulminans [Recovered/Resolved]
  - Disseminated intravascular coagulation [Recovered/Resolved]
  - Leukocytosis [Recovered/Resolved]
  - Hepatitis [Recovered/Resolved]
  - Eosinophil count increased [Recovered/Resolved]
